FAERS Safety Report 16106929 (Version 1)
Quarter: 2019Q1

REPORT INFORMATION
  Report Type: Spontaneous
  Country: CA (occurrence: CA)
  Receive Date: 20190322
  Receipt Date: 20190322
  Transmission Date: 20190418
  Serious: Yes (Hospitalization)
  Sender: FDA-Public Use
  Company Number: CA-PFIZER INC-2017207872

PATIENT
  Age: 72 Year
  Sex: Male

DRUGS (14)
  1. SIMVASTATIN. [Concomitant]
     Active Substance: SIMVASTATIN
     Dosage: 20 MG, DAILY
  2. FUROSEMIDE. [Concomitant]
     Active Substance: FUROSEMIDE
     Dosage: 20 MG, DAILY
     Route: 048
  3. ASA [Concomitant]
     Active Substance: ASPIRIN
     Dosage: 81 MG, DAILY
  4. ATROVENT [Concomitant]
     Active Substance: IPRATROPIUM BROMIDE
     Dosage: 2 PUFFS, 4X/DAY
  5. WARFARIN [Concomitant]
     Active Substance: WARFARIN
     Dosage: 2.5 MG, DAILY (EXCEPT ON 3RD DAY 1 EXTRA TAB)
  6. WINPRED [Concomitant]
     Active Substance: PREDNISONE
     Dosage: 1 MG, DAILY
  7. CALCIUM [Concomitant]
     Active Substance: CALCIUM
     Dosage: 500 MG, 2 TABS DAILY
  8. ALLOPURINOL. [Concomitant]
     Active Substance: ALLOPURINOL
     Dosage: 200 MG, DAILY
  9. VITAMIN D /00107901/ [Concomitant]
     Active Substance: ERGOCALCIFEROL
     Dosage: 1000 IU, DAILY
  10. REVATIO [Suspect]
     Active Substance: SILDENAFIL CITRATE
     Indication: PULMONARY ARTERIAL HYPERTENSION
     Dosage: 20 MG, 3X/DAY
     Route: 048
     Dates: start: 20161116
  11. PALAFER [Concomitant]
     Active Substance: FERROUS FUMARATE
     Dosage: 300 MG, DAILY
  12. METFORMIN [Concomitant]
     Active Substance: METFORMIN HYDROCHLORIDE
     Dosage: 500 MG, DAILY
  13. COVERSYL /00790702/ [Concomitant]
     Active Substance: PERINDOPRIL
     Dosage: 500 MG, DAILY
  14. APOSALVENT [Concomitant]
     Active Substance: ALBUTEROL
     Dosage: 2 PUFFS

REACTIONS (2)
  - Dyspnoea [Unknown]
  - Drug ineffective [Unknown]
